FAERS Safety Report 8712758 (Version 2)
Quarter: 2012Q4

REPORT INFORMATION
  Report Type: Report from Study
  Country: US (occurrence: US)
  Receive Date: 20120808
  Receipt Date: 20121218
  Transmission Date: 20130627
  Serious: Yes (Hospitalization)
  Sender: FDA-Public Use
  Company Number: US-US-EMD SERONO, INC.-7151816

PATIENT
  Sex: Female

DRUGS (1)
  1. REBIF [Suspect]
     Indication: MULTIPLE SCLEROSIS
     Route: 058
     Dates: start: 20120127

REACTIONS (4)
  - Pneumonia [Unknown]
  - Diaphragmatic paralysis [Unknown]
  - Cellulitis [Unknown]
  - Asthenia [Unknown]
